FAERS Safety Report 9118299 (Version 1)
Quarter: 2013Q1

REPORT INFORMATION
  Report Type: Spontaneous
  Country: US (occurrence: None)
  Receive Date: 20130221
  Receipt Date: 20130221
  Transmission Date: 20140127
  Serious: No
  Sender: FDA-Public Use
  Company Number: None

PATIENT
  Sex: Female
  Weight: 36.29 kg

DRUGS (1)
  1. CLARITIN [Suspect]
     Indication: SEASONAL ALLERGY
     Dosage: 10 MG ONCE A DAY PO
     Route: 048
     Dates: start: 20130201, end: 20130203

REACTIONS (7)
  - Anxiety [None]
  - Agitation [None]
  - Aggression [None]
  - Irritability [None]
  - Psychotic disorder [None]
  - Personality change [None]
  - Suicidal ideation [None]
